FAERS Safety Report 4933915-6 (Version None)
Quarter: 2006Q1

REPORT INFORMATION
  Report Type: 
  Country: None (occurrence: None)
  Receive Date: 20060301
  Receipt Date: 20050516
  Transmission Date: 20060701
  Serious: Yes (Hospitalization)
  Sender: FDA-Public Use
  Company Number: ACC000043

PATIENT
  Sex: Female

DRUGS (2)
  1. REGLAN [Suspect]
     Indication: NAUSEA
     Dosage: IV
     Route: 042
     Dates: start: 20040901
  2. ZOFRAN [Suspect]
     Indication: NAUSEA
     Dosage: IV
     Route: 042
     Dates: start: 20040901

REACTIONS (5)
  - ABORTION SPONTANEOUS [None]
  - CARDIAC FLUTTER [None]
  - DRUG EXPOSURE DURING PREGNANCY [None]
  - FEAR [None]
  - INTRA-UTERINE DEATH [None]
